FAERS Safety Report 5261994-8 (Version None)
Quarter: 2007Q1

REPORT INFORMATION
  Report Type: 
  Country: None (occurrence: None)
  Receive Date: 20070308
  Receipt Date: 20070226
  Transmission Date: 20070707
  Serious: Yes (Hospitalization)
  Sender: FDA-Public Use
  Company Number: PRI050412007014

PATIENT
  Age: 71 Year
  Sex: Male
  Weight: 78.0187 kg

DRUGS (13)
  1. BEVACIZUMAB (GENETECH) [Suspect]
     Indication: COLON CANCER METASTATIC
     Dosage: 5MG/KG Q2W IV
     Route: 042
     Dates: start: 20060816, end: 20070122
  2. OXALIPLATIN [Concomitant]
  3. FLUOROURACIL [Concomitant]
  4. LEUCOVORIN CALCIUM [Concomitant]
  5. LIPITOR [Concomitant]
  6. NIASPAN [Concomitant]
  7. QUANAPRIL [Concomitant]
  8. COREG [Concomitant]
  9. HEMOCYTE [Concomitant]
  10. PHENERGAN HCL [Concomitant]
  11. ALBUTEROL [Concomitant]
  12. XOPENEX [Concomitant]
  13. FLONASE [Concomitant]

REACTIONS (3)
  - DYSPNOEA [None]
  - THROMBOSIS IN DEVICE [None]
  - TRACHEITIS [None]
